FAERS Safety Report 5645572-4 (Version None)
Quarter: 2008Q1

REPORT INFORMATION
  Report Type: 
  Country: None (occurrence: None)
  Receive Date: 20080229
  Receipt Date: 20080221
  Transmission Date: 20080703
  Serious: Yes (Other)
  Sender: FDA-Public Use
  Company Number: GB-JNJFOC-20080204761

PATIENT
  Age: 38 Year
  Sex: Female

DRUGS (5)
  1. TOPIRAMATE [Suspect]
     Indication: AFFECTIVE DISORDER
     Route: 048
  2. CLINDAMYCIN HCL [Concomitant]
     Indication: VAGINAL INFECTION
     Route: 065
  3. LORATADINE [Concomitant]
     Indication: PRURITUS
     Route: 048
  4. PRIADEL [Concomitant]
     Indication: MOOD ALTERED
     Route: 048
  5. QUETIAPINE FUMARATE [Concomitant]
     Indication: MOOD ALTERED
     Route: 048

REACTIONS (6)
  - CONTUSION [None]
  - OEDEMA MOUTH [None]
  - OEDEMA PERIPHERAL [None]
  - ORAL MUCOSAL PETECHIAE [None]
  - RASH ERYTHEMATOUS [None]
  - SKIN EXFOLIATION [None]
